FAERS Safety Report 8456071-9 (Version None)
Quarter: 2012Q2

REPORT INFORMATION
  Report Type: 
  Country: None (occurrence: None)
  Receive Date: 20120621
  Receipt Date: 20120614
  Transmission Date: 20120825
  Serious: Yes (Hospitalization, Other)
  Sender: FDA-Public Use
  Company Number: DE-ELI_LILLY_AND_COMPANY-DE201206004937

PATIENT
  Sex: Female

DRUGS (4)
  1. ANALGESICS [Concomitant]
     Dosage: UNK
     Route: 065
  2. FORTEO [Suspect]
     Indication: OSTEOPOROSIS
     Dosage: UNK, QD
     Route: 058
     Dates: start: 20111214
  3. CALCIUM [Concomitant]
     Dosage: UNK
     Route: 065
  4. VITAMIN D [Concomitant]
     Dosage: UNK
     Route: 065

REACTIONS (2)
  - COMMINUTED FRACTURE [None]
  - FALL [None]
